FAERS Safety Report 10977624 (Version 1)
Quarter: 2015Q1

REPORT INFORMATION
  Report Type: Spontaneous
  Country: US (occurrence: None)
  Receive Date: 20150330
  Receipt Date: 20150330
  Transmission Date: 20150721
  Serious: Yes (Other)
  Sender: FDA-Public Use
  Company Number: 2015FE00966

PATIENT
  Sex: Female

DRUGS (1)
  1. ENDOMETRIN [Suspect]
     Active Substance: PROGESTERONE
     Indication: ASSISTED FERTILISATION

REACTIONS (5)
  - Ovarian hyperstimulation syndrome [None]
  - Blighted ovum [None]
  - Jaundice [None]
  - Biochemical pregnancy [None]
  - Blood alkaline phosphatase increased [None]
